FAERS Safety Report 7584732-2 (Version None)
Quarter: 2011Q2

REPORT INFORMATION
  Report Type: 
  Country: None (occurrence: None)
  Receive Date: 20110630
  Receipt Date: 20110617
  Transmission Date: 20111010
  Serious: Yes (Other)
  Sender: FDA-Public Use
  Company Number: PHHY2011DE54089

PATIENT
  Age: 64 Year
  Sex: Male

DRUGS (2)
  1. CORTISONE ACETATE [Concomitant]
     Dosage: UNK UKN, UNK
  2. ZOLEDRONIC ACID [Suspect]
     Dosage: UNK UKN, UNK
     Route: 042
     Dates: start: 20010701, end: 20070701

REACTIONS (1)
  - OSTEONECROSIS OF JAW [None]
